FAERS Safety Report 6842296-2 (Version None)
Quarter: 2010Q3

REPORT INFORMATION
  Report Type: 
  Country: None (occurrence: None)
  Receive Date: 20100714
  Receipt Date: 20070725
  Transmission Date: 20110219
  Serious: No
  Sender: FDA-Public Use
  Company Number: US-PFIZER INC-2007063054

PATIENT
  Sex: Female
  Weight: 52.2 kg

DRUGS (8)
  1. CHANTIX [Suspect]
     Indication: SMOKING CESSATION THERAPY
     Dates: start: 20070621
  2. ALBUTEROL [Concomitant]
     Route: 055
  3. ANTI-ASTHMATICS [Concomitant]
     Route: 055
  4. ATROVENT [Concomitant]
     Route: 055
  5. TRIAMTERENE [Concomitant]
  6. PROZAC [Concomitant]
  7. DRUG, UNSPECIFIED [Concomitant]
  8. ALLEGRA [Concomitant]

REACTIONS (4)
  - ABDOMINAL DISCOMFORT [None]
  - ABDOMINAL PAIN UPPER [None]
  - DIZZINESS [None]
  - HEADACHE [None]
